FAERS Safety Report 15786969 (Version 1)
Quarter: 2019Q1

REPORT INFORMATION
  Report Type: Spontaneous
  Country: US (occurrence: US)
  Receive Date: 20190103
  Receipt Date: 20190103
  Transmission Date: 20190417
  Serious: Yes (Hospitalization, Other)
  Sender: FDA-Public Use
  Company Number: US-PFIZER INC-2019001496

PATIENT
  Age: 49 Year
  Sex: Female

DRUGS (1)
  1. XELJANZ XR [Suspect]
     Active Substance: TOFACITINIB CITRATE
     Indication: RHEUMATOID ARTHRITIS
     Dosage: 11 MG, DAILY
     Route: 048

REACTIONS (7)
  - Pneumonia aspiration [Unknown]
  - Nasal congestion [Unknown]
  - Tension headache [Unknown]
  - Fungal skin infection [Unknown]
  - Blood cholesterol increased [Unknown]
  - Weight decreased [Unknown]
  - Sinus headache [Unknown]

NARRATIVE: CASE EVENT DATE: 201810
